FAERS Safety Report 22162728 (Version 1)
Quarter: 2023Q1

REPORT INFORMATION
  Report Type: Report from Study
  Country: US (occurrence: None)
  Receive Date: 20230331
  Receipt Date: 20230331
  Transmission Date: 20230418
  Serious: Yes (Hospitalization)
  Sender: FDA-Public Use
  Company Number: 2023A072510

PATIENT

DRUGS (1)
  1. TAGRISSO [Suspect]
     Active Substance: OSIMERTINIB
     Indication: Non-small cell lung cancer
     Route: 048
     Dates: start: 20200409

REACTIONS (9)
  - Gastrointestinal disorder [Unknown]
  - Paraesthesia [Unknown]
  - Dyspepsia [Unknown]
  - Dyspnoea [Unknown]
  - Blood pressure increased [Unknown]
  - Abdominal pain [Unknown]
  - Weight decreased [Unknown]
  - Insomnia [Unknown]
  - COVID-19 [Unknown]
